FAERS Safety Report 12413398 (Version 1)
Quarter: 2016Q2

REPORT INFORMATION
  Report Type: Spontaneous
  Country: US (occurrence: US)
  Receive Date: 20160527
  Receipt Date: 20160527
  Transmission Date: 20160815
  Serious: Yes (Other)
  Sender: FDA-Public Use
  Company Number: US-ARBOR PHARMACEUTICALS, LLC-US-2016ARB000371

PATIENT
  Age: 10 Year
  Sex: Male

DRUGS (2)
  1. EVEKEO [Suspect]
     Active Substance: AMPHETAMINE SULFATE
     Indication: PRODUCT USED FOR UNKNOWN INDICATION
     Dosage: 5 MG, ONCE DAILY MONDAY-FRIDAY
  2. EVEKEO [Suspect]
     Active Substance: AMPHETAMINE SULFATE
     Dosage: 5 MG, UNK

REACTIONS (4)
  - Homicidal ideation [Recovering/Resolving]
  - Suicidal ideation [Recovering/Resolving]
  - Drug withdrawal syndrome [Recovering/Resolving]
  - Abnormal behaviour [Recovering/Resolving]
